FAERS Safety Report 24774623 (Version 1)
Quarter: 2024Q4

REPORT INFORMATION
  Report Type: Spontaneous
  Country: CA (occurrence: CA)
  Receive Date: 20241226
  Receipt Date: 20241226
  Transmission Date: 20250115
  Serious: Yes (Hospitalization, Other)
  Sender: ALEXION PHARMACEUTICALS
  Company Number: None

PATIENT
  Age: 65 Year

DRUGS (21)
  1. QUETIAPINE FUMARATE [Suspect]
     Active Substance: QUETIAPINE FUMARATE
     Indication: Depression
     Route: 065
  2. APIXABAN [Suspect]
     Active Substance: APIXABAN
     Indication: Depression
     Dosage: 5 MILLIGRAM, BID
     Route: 065
  3. BUPROPION [Suspect]
     Active Substance: BUPROPION
     Indication: Depression
     Dosage: 400 MILLIGRAM, QD
     Route: 065
  4. CANNABIS SATIVA SUBSP. INDICA TOP [Suspect]
     Active Substance: CANNABIS SATIVA SUBSP. INDICA TOP
     Indication: Insomnia
     Dosage: UNK
     Route: 065
  5. CLOMIPRAMINE [Suspect]
     Active Substance: CLOMIPRAMINE
  6. DAYVIGO [Suspect]
     Active Substance: LEMBOREXANT
  7. ESCITALOPRAM [Suspect]
     Active Substance: ESCITALOPRAM OXALATE
  8. FLUOXETINE [Suspect]
     Active Substance: FLUOXETINE HYDROCHLORIDE
  9. FLUVOXAMINE [Suspect]
     Active Substance: FLUVOXAMINE
  10. GABAPENTIN [Suspect]
     Active Substance: GABAPENTIN
  11. MIRTAZAPINE [Suspect]
     Active Substance: MIRTAZAPINE
  12. LEVOMEPROMAZINE [Suspect]
     Active Substance: LEVOMEPROMAZINE
  13. PANTOPRAZOLE [Suspect]
     Active Substance: PANTOPRAZOLE
     Indication: Depression
     Dosage: 40 MILLIGRAM, QD
     Route: 065
  14. PAROXETINE [Suspect]
     Active Substance: PAROXETINE
  15. PRAMIPEXOLE [Suspect]
     Active Substance: PRAMIPEXOLE\PRAMIPEXOLE DIHYDROCHLORIDE
     Dosage: 0.25 MILLIGRAM, BID
     Route: 065
  16. REXULTI [Suspect]
     Active Substance: BREXPIPRAZOLE
     Indication: Depression
  17. RISPERIDONE [Suspect]
     Active Substance: RISPERIDONE
  18. TRINTELLIX [Suspect]
     Active Substance: VORTIOXETINE HYDROBROMIDE
  19. VENLAFAXINE HYDROCHLORIDE [Suspect]
     Active Substance: VENLAFAXINE HYDROCHLORIDE
  20. ZOLPIDEM [Suspect]
     Active Substance: ZOLPIDEM TARTRATE
  21. ZOPICLONE [Suspect]
     Active Substance: ZOPICLONE

REACTIONS (5)
  - Adverse drug reaction [Unknown]
  - Condition aggravated [Unknown]
  - Drug ineffective [Unknown]
  - Suicidal ideation [Unknown]
  - Suicide attempt [Unknown]
